FAERS Safety Report 6921957-0 (Version None)
Quarter: 2010Q3

REPORT INFORMATION
  Report Type: 
  Country: None (occurrence: None)
  Receive Date: 20100806
  Receipt Date: 20100518
  Transmission Date: 20110219
  Serious: No
  Sender: FDA-Public Use
  Company Number: 2010-06997

PATIENT
  Age: 85 Year
  Sex: Male

DRUGS (2)
  1. RAPAFLO [Suspect]
     Indication: BENIGN PROSTATIC HYPERPLASIA
     Dosage: 1 CAPSUL, DAIL, ORAL
     Route: 048
     Dates: start: 20100512, end: 20100514
  2. ENABLEX [Suspect]
     Indication: BENIGN PROSTATIC HYPERPLASIA
     Dosage: 1 TABLET, DAILY, ORAL
     Route: 048
     Dates: start: 20100512, end: 20100513

REACTIONS (2)
  - DIPLOPIA [None]
  - VISION BLURRED [None]
